FAERS Safety Report 16108157 (Version 1)
Quarter: 2019Q1

REPORT INFORMATION
  Report Type: Report from Study
  Country: CO (occurrence: CO)
  Receive Date: 20190322
  Receipt Date: 20190322
  Transmission Date: 20190418
  Serious: Yes (Life-Threatening, Hospitalization, Disabling)
  Sender: FDA-Public Use
  Company Number: CO-TAKEDA-2019TUS015798

PATIENT
  Age: 37 Year
  Sex: Male
  Weight: 57 kg

DRUGS (2)
  1. PONATINIB [Suspect]
     Active Substance: PONATINIB
     Dosage: UNK
     Route: 048
     Dates: start: 20181117
  2. PONATINIB [Suspect]
     Active Substance: PONATINIB
     Indication: CHRONIC MYELOID LEUKAEMIA
     Dosage: 45 MILLIGRAM, QD
     Route: 048
     Dates: start: 201808

REACTIONS (6)
  - Counterfeit product administered [Unknown]
  - Vision blurred [Unknown]
  - Arthralgia [Unknown]
  - Mucosal dryness [Unknown]
  - Muscular weakness [Unknown]
  - Vasodilatation [Unknown]

NARRATIVE: CASE EVENT DATE: 20181117
